FAERS Safety Report 4726703-7 (Version None)
Quarter: 2005Q3

REPORT INFORMATION
  Report Type: 
  Country: None (occurrence: None)
  Receive Date: 20050725
  Receipt Date: 20050412
  Transmission Date: 20060218
  Serious: No
  Sender: FDA-Public Use
  Company Number: USA040671464

PATIENT
  Age: 63 Year
  Sex: Male

DRUGS (10)
  1. STRATTERA [Suspect]
     Indication: ATTENTION DEFICIT/HYPERACTIVITY DISORDER
     Dosage: 60 MG
     Dates: start: 20040301
  2. ZOLOFT [Concomitant]
  3. PROSCAR [Concomitant]
  4. ECHINACEA EXTRACT [Concomitant]
  5. GLUCOSAMINE CHONDROITIN [Concomitant]
  6. CITRACAL (CALCIUM CITRATE) [Concomitant]
  7. SELENIUM SULFIDE [Concomitant]
  8. VITAMIN E [Concomitant]
  9. VITAMIN B COMPLEX CAP [Concomitant]
  10. CRANBERRY [Concomitant]

REACTIONS (8)
  - CONSTIPATION [None]
  - DIZZINESS [None]
  - INSOMNIA [None]
  - MICTURITION URGENCY [None]
  - POLLAKIURIA [None]
  - PROSTATIC SPECIFIC ANTIGEN INCREASED [None]
  - SEXUAL DYSFUNCTION [None]
  - URINE OUTPUT DECREASED [None]
